FAERS Safety Report 5916279-0 (Version None)
Quarter: 2008Q4

REPORT INFORMATION
  Report Type: 
  Country: None (occurrence: None)
  Receive Date: 20081013
  Receipt Date: 20081006
  Transmission Date: 20090506
  Serious: Yes (Other)
  Sender: FDA-Public Use
  Company Number: PHHY2008ZA23701

PATIENT
  Sex: Female

DRUGS (2)
  1. ZOMETA [Suspect]
  2. FOLFOX [Concomitant]

REACTIONS (1)
  - OSTEONECROSIS [None]
